FAERS Safety Report 5246400-1 (Version None)
Quarter: 2007Q1

REPORT INFORMATION
  Report Type: 
  Country: None (occurrence: None)
  Receive Date: 20070226
  Receipt Date: 20070215
  Transmission Date: 20070707
  Serious: Yes (Death)
  Sender: FDA-Public Use
  Company Number: US-JNJFOC-20070204210

PATIENT
  Sex: Male

DRUGS (1)
  1. DURAGESIC [Suspect]
     Indication: PAIN
     Dosage: 100 UG/HR PATCH PLUS 25 UG/HR PATCH
     Route: 062

REACTIONS (2)
  - ANALGESIC DRUG LEVEL [None]
  - PULMONARY EMBOLISM [None]
